FAERS Safety Report 14567110 (Version 7)
Quarter: 2018Q3

REPORT INFORMATION
  Report Type: Spontaneous
  Country: FR (occurrence: FR)
  Receive Date: 20180223
  Receipt Date: 20180804
  Transmission Date: 20181010
  Serious: Yes (Hospitalization, Other)
  Sender: FDA-Public Use
  Company Number: FR-AUROBINDO-AUR-APL-2018-009754

PATIENT
  Age: 14 Year
  Sex: Female
  Weight: 42.5 kg

DRUGS (27)
  1. VORICONAZOLE POWDER FOR SOLUTION FOR INFUSION [Interacting]
     Active Substance: VORICONAZOLE
     Dosage: UNK, (DOSE INCREASE (UP TO 8.75 MG/KG/12 H)
     Route: 048
  2. VINCRISTINE [Interacting]
     Active Substance: VINCRISTINE
     Indication: ACUTE LYMPHOCYTIC LEUKAEMIA
     Dosage: FRALLE 2000?BT PROTOCOL
     Route: 042
  3. VINCRISTINE [Interacting]
     Active Substance: VINCRISTINE
     Dosage: 1.5 MG, UNK
  4. METHOTREXATE. [Concomitant]
     Active Substance: METHOTREXATE
     Indication: PRODUCT USED FOR UNKNOWN INDICATION
     Dosage: 5.5 G, UNK
     Route: 041
  5. CASPOFUNGIN [Concomitant]
     Active Substance: CASPOFUNGIN
     Dosage: 50 MG, UNK
  6. FUROSEMIDE. [Concomitant]
     Active Substance: FUROSEMIDE
     Indication: PRODUCT USED FOR UNKNOWN INDICATION
     Dosage: STARTED THE DAY 159 ()
     Route: 065
  7. AMIKACIN. [Concomitant]
     Active Substance: AMIKACIN
     Indication: PRODUCT USED FOR UNKNOWN INDICATION
     Dosage: STARTED THE DAY 155 ()
     Route: 065
  8. VANCOMYCIN [Concomitant]
     Active Substance: VANCOMYCIN
     Indication: PRODUCT USED FOR UNKNOWN INDICATION
     Dosage: STARTED THE DAY 155 ()
     Route: 065
  9. VORICONAZOLE POWDER FOR SOLUTION FOR INFUSION [Suspect]
     Active Substance: VORICONAZOLE
     Indication: BRONCHOPULMONARY ASPERGILLOSIS
     Dosage: 300 MG, TWO TIMES A DAY
     Route: 042
  10. VORICONAZOLE POWDER FOR SOLUTION FOR INFUSION [Interacting]
     Active Substance: VORICONAZOLE
     Dosage: 300 MG, TWO TIMES A DAY
     Route: 042
  11. METHOTREXATE. [Concomitant]
     Active Substance: METHOTREXATE
     Indication: ACUTE LYMPHOCYTIC LEUKAEMIA
     Dosage: 5.5 G, UNK
     Route: 041
  12. IMIPENEM [Concomitant]
     Active Substance: IMIPENEM
     Indication: PRODUCT USED FOR UNKNOWN INDICATION
     Dosage: STARTED THE DAY 155 ()
  13. VORICONAZOLE POWDER FOR SOLUTION FOR INFUSION [Interacting]
     Active Substance: VORICONAZOLE
     Dosage: UNKUNK, 2X/DAY (7.5 MG/KG/12 H)
     Route: 048
  14. VINCRISTINE [Interacting]
     Active Substance: VINCRISTINE
     Dosage: UNK, CYCLICAL
     Route: 048
  15. TRIMETHOPRIM. [Concomitant]
     Active Substance: TRIMETHOPRIM
     Indication: PRODUCT USED FOR UNKNOWN INDICATION
     Dosage: STARTED THE DAY 159 ()
     Route: 065
  16. CASPOFUNGIN [Concomitant]
     Active Substance: CASPOFUNGIN
     Indication: PRODUCT USED FOR UNKNOWN INDICATION
     Dosage: LAST DOSE THE DAY 164, 50 MG, DAILY
  17. CASPOFUNGIN [Concomitant]
     Active Substance: CASPOFUNGIN
     Dosage: 50 MG, LAST DOSE THE DAY 164
     Route: 065
  18. CASPOFUNGIN [Concomitant]
     Active Substance: CASPOFUNGIN
     Dosage: LAST DOSE THE DAY 164
  19. CASPOFUNGIN [Concomitant]
     Active Substance: CASPOFUNGIN
     Dosage: 50 MG, UNK
     Route: 065
  20. GRANULOCYTE COLONY STIMULATING FACTOR [Concomitant]
     Active Substance: GRANULOCYTE COLONY-STIMULATING FACTOR NOS
     Indication: PRODUCT USED FOR UNKNOWN INDICATION
     Dosage: FROM THE DAY 154 TO DAY 164 ()
     Route: 065
  21. AMPHOTERICIN B. [Concomitant]
     Active Substance: AMPHOTERICIN B
     Indication: PRODUCT USED FOR UNKNOWN INDICATION
     Dosage: STARTED THE DAY 159 ()
  22. VINCRISTINE [Interacting]
     Active Substance: VINCRISTINE
     Dosage: 2 MG, UNK
     Route: 065
  23. PHLOROGLUCINOL [Concomitant]
     Active Substance: PHLOROGLUCINOL
     Indication: PRODUCT USED FOR UNKNOWN INDICATION
     Dosage: FROM THE DAY 154 TO DAY 164 ()
     Route: 065
  24. SULFAMETHOXAZOLE [Concomitant]
     Active Substance: SULFAMETHOXAZOLE
     Indication: PRODUCT USED FOR UNKNOWN INDICATION
     Dosage: STARTED THE DAY 159 ()
  25. AMIKACIN. [Concomitant]
     Active Substance: AMIKACIN
     Dosage: LAST DOSE THE DAY 164
     Route: 065
  26. GABAPENTIN. [Concomitant]
     Active Substance: GABAPENTIN
     Indication: PRODUCT USED FOR UNKNOWN INDICATION
     Dosage: FROM THE DAY 154 TO DAY 164, 400 MG, 8 HOURS
     Route: 065
  27. PARACETAMOL [Concomitant]
     Active Substance: ACETAMINOPHEN
     Indication: PRODUCT USED FOR UNKNOWN INDICATION
     Dosage: FROM THE DAY 154 TO DAY 164 ()

REACTIONS (25)
  - Bronchopulmonary aspergillosis [Recovering/Resolving]
  - Confusional state [Recovering/Resolving]
  - Hallucination, auditory [Unknown]
  - Hepatosplenic candidiasis [Recovering/Resolving]
  - Drug level above therapeutic [Unknown]
  - Respiratory distress [Recovering/Resolving]
  - Encephalopathy [Recovered/Resolved]
  - Condition aggravated [Recovering/Resolving]
  - Neuralgia [Unknown]
  - Drug interaction [Recovering/Resolving]
  - Neurotoxicity [Recovered/Resolved]
  - Hypoaesthesia [Unknown]
  - Labelled drug-drug interaction medication error [Recovering/Resolving]
  - Electric shock [Unknown]
  - Hallucination, visual [Unknown]
  - Drug level below therapeutic [Recovered/Resolved]
  - Musculoskeletal pain [Unknown]
  - Hallucinations, mixed [Recovered/Resolved]
  - Treatment failure [Unknown]
  - Arthralgia [Unknown]
  - Inflammation [Recovered/Resolved]
  - Drug level increased [Recovered/Resolved]
  - Nervous system disorder [Recovered/Resolved]
  - Disease progression [Recovering/Resolving]
  - Disorientation [Recovering/Resolving]
